FAERS Safety Report 8009886-5 (Version None)
Quarter: 2011Q4

REPORT INFORMATION
  Report Type: 
  Country: None (occurrence: None)
  Receive Date: 20111228
  Receipt Date: 20111122
  Transmission Date: 20120403
  Serious: Yes (Other)
  Sender: FDA-Public Use
  Company Number: DE-JNJFOC-20111210596

PATIENT
  Age: 45 Year
  Sex: Female

DRUGS (3)
  1. PALEXIA RETARD [Suspect]
     Indication: PRODUCT USED FOR UNKNOWN INDICATION
     Dosage: 2 TIMES A DAY
     Route: 048
     Dates: start: 20111006, end: 20111012
  2. ANALGIN [Concomitant]
     Indication: PRODUCT USED FOR UNKNOWN INDICATION
     Route: 065
  3. PALEXIA RETARD [Suspect]
     Dosage: 2 TIMES A DAY
     Route: 048
     Dates: start: 20111013, end: 20111013

REACTIONS (4)
  - DRUG INEFFECTIVE [None]
  - NAUSEA [None]
  - BLINDNESS TRANSIENT [None]
  - BLINDNESS [None]
